FAERS Safety Report 16744645 (Version 1)
Quarter: 2019Q3

REPORT INFORMATION
  Report Type: Spontaneous
  Country: CA (occurrence: CA)
  Receive Date: 20190827
  Receipt Date: 20190827
  Transmission Date: 20191005
  Serious: Yes (Life-Threatening, Hospitalization, Other)
  Sender: FDA-Public Use
  Company Number: CA-MYLANLABS-2019M1078906

PATIENT
  Age: 59 Year
  Sex: Male

DRUGS (1)
  1. DIMETHYL SULFOXIDE. [Suspect]
     Active Substance: DIMETHYL SULFOXIDE
     Indication: THERAPEUTIC EMBOLISATION
     Route: 050

REACTIONS (1)
  - Cardiac arrest [Recovered/Resolved]
